FAERS Safety Report 5682797-6 (Version None)
Quarter: 2008Q1

REPORT INFORMATION
  Report Type: 
  Country: None (occurrence: None)
  Receive Date: 20080327
  Receipt Date: 20080313
  Transmission Date: 20080703
  Serious: Yes (Other)
  Sender: FDA-Public Use
  Company Number: JP-ASTRAZENECA-2008SE01562

PATIENT
  Age: 62 Year
  Sex: Male

DRUGS (2)
  1. BLOPRESS TABLETS 4 [Suspect]
     Route: 048
     Dates: start: 20060501, end: 20060601
  2. TAKEPRON OD TABLETS 30 [Suspect]
     Route: 048
     Dates: start: 20060801, end: 20060901

REACTIONS (2)
  - INTERSTITIAL LUNG DISEASE [None]
  - LIVER DISORDER [None]
